FAERS Safety Report 8084246-X (Version None)
Quarter: 2012Q1

REPORT INFORMATION
  Report Type: 
  Country: None (occurrence: None)
  Receive Date: 20120128
  Receipt Date: 20110321
  Transmission Date: 20120608
  Serious: No
  Sender: FDA-Public Use
  Company Number: US-ABBOTT-11P-163-0709674-00

PATIENT
  Sex: Male
  Weight: 90.8 kg

DRUGS (4)
  1. HUMIRA [Suspect]
     Indication: CROHN'S DISEASE
     Route: 058
     Dates: start: 20100101
  2. FISH OIL CAPSULES [Concomitant]
     Indication: SUPPLEMENTATION THERAPY
     Route: 048
  3. SEROQUEL [Concomitant]
     Indication: DEPRESSION
     Dosage: UNKNOWN STRENGTH
     Route: 048
  4. LUNESTA [Concomitant]
     Indication: INSOMNIA
     Route: 048

REACTIONS (5)
  - THROAT IRRITATION [None]
  - LACRIMATION INCREASED [None]
  - LUNG INFECTION [None]
  - DRUG INEFFECTIVE [None]
  - COUGH [None]
